FAERS Safety Report 6546760-5 (Version None)
Quarter: 2010Q1

REPORT INFORMATION
  Report Type: 
  Country: None (occurrence: None)
  Receive Date: 20100119
  Receipt Date: 20100108
  Transmission Date: 20100710
  Serious: Yes (Death, Disabling)
  Sender: FDA-Public Use
  Company Number: OSCN-PR-1001L-0004

PATIENT
  Age: 66 Year
  Sex: Female

DRUGS (1)
  1. OMNISCAN [Suspect]
     Indication: NEUROLOGICAL SYMPTOM
     Dosage: NR, SINGLE DOSE
     Dates: start: 20060601, end: 20060601

REACTIONS (1)
  - NEPHROGENIC SYSTEMIC FIBROSIS [None]
